FAERS Safety Report 7586809-4 (Version None)
Quarter: 2011Q3

REPORT INFORMATION
  Report Type: 
  Country: None (occurrence: None)
  Receive Date: 20110701
  Receipt Date: 20110621
  Transmission Date: 20111222
  Serious: Yes (Hospitalization)
  Sender: FDA-Public Use
  Company Number: PHHY2011DK54757

PATIENT
  Sex: Female

DRUGS (3)
  1. ENALAPRIL MALEATE AND HYDROCHLOROTHIAZIDE [Concomitant]
     Indication: BLOOD PRESSURE
     Route: 048
  2. XELODA [Concomitant]
     Indication: COLON CANCER
     Route: 065
     Dates: start: 20110330
  3. OXALIPLATIN [Suspect]
     Indication: COLON CANCER
     Route: 065
     Dates: start: 20110330, end: 20110330

REACTIONS (7)
  - DYSPHONIA [None]
  - ANXIETY [None]
  - DYSPNOEA [None]
  - MUCOSAL DRYNESS [None]
  - SENSORY DISTURBANCE [None]
  - NERVOUSNESS [None]
  - DYSPHAGIA [None]
